FAERS Safety Report 13072374 (Version 1)
Quarter: 2016Q4

REPORT INFORMATION
  Report Type: Spontaneous
  Country: US (occurrence: US)
  Receive Date: 20161229
  Receipt Date: 20161229
  Transmission Date: 20170207
  Serious: Yes (Death, Hospitalization)
  Sender: FDA-Public Use
  Company Number: US-CANTON LABORATORIES, LLC-1061374

PATIENT
  Age: 43 Year
  Sex: Female

DRUGS (18)
  1. VITAMIN D3 (CHOLECALCIFEROL) [Concomitant]
     Route: 048
  2. XGEVA [Concomitant]
     Active Substance: DENOSUMAB
     Route: 058
  3. MORPHINE SULFATE ER [Concomitant]
     Active Substance: MORPHINE SULFATE
     Route: 048
  4. ONDANSETRON [Concomitant]
     Active Substance: ONDANSETRON
     Route: 048
  5. GABAPENTIN. [Concomitant]
     Active Substance: GABAPENTIN
     Route: 048
  6. NAPROSYN [Suspect]
     Active Substance: NAPROXEN
     Indication: PAIN
     Route: 048
  7. BUDESONIDE/FORMOTEROL [Concomitant]
     Active Substance: BUDESONIDE\FORMOTEROL
     Route: 055
  8. TYLENOL [Concomitant]
     Active Substance: ACETAMINOPHEN
     Dates: start: 20150716, end: 20150716
  9. OMEPRAZOLE. [Concomitant]
     Active Substance: OMEPRAZOLE
     Route: 048
  10. POLYETHYLENE GLYCOL [Concomitant]
     Active Substance: POLYETHYLENE GLYCOLS
     Route: 048
  11. IBRANCE [Suspect]
     Active Substance: PALBOCICLIB
     Route: 048
     Dates: start: 20150321, end: 20150430
  12. BENZONATATE. [Concomitant]
     Active Substance: BENZONATATE
     Route: 048
  13. ORPHENADRINE CITRATE. [Concomitant]
     Active Substance: ORPHENADRINE CITRATE
     Route: 048
  14. MELATONIN [Concomitant]
     Active Substance: MELATONIN
     Route: 048
  15. MORPHINE [Concomitant]
     Active Substance: MORPHINE
     Route: 048
  16. LETROZOLE. [Suspect]
     Active Substance: LETROZOLE
     Route: 048
     Dates: start: 20150321, end: 20150716
  17. PROAIR HFA [Concomitant]
     Active Substance: ALBUTEROL SULFATE
     Route: 055
  18. ALBUTEROL. [Concomitant]
     Active Substance: ALBUTEROL

REACTIONS (5)
  - Acute hepatic failure [Fatal]
  - Disseminated intravascular coagulation [Fatal]
  - Haemolytic anaemia [Fatal]
  - Hepatitis acute [Fatal]
  - Thrombocytopenia [Fatal]

NARRATIVE: CASE EVENT DATE: 20150716
